FAERS Safety Report 14217985 (Version 3)
Quarter: 2018Q1

REPORT INFORMATION
  Report Type: Spontaneous
  Country: US (occurrence: US)
  Receive Date: 20171123
  Receipt Date: 20180213
  Transmission Date: 20180508
  Serious: No
  Sender: FDA-Public Use
  Company Number: US-CELGENEUS-USA-20171106776

PATIENT
  Age: 69 Year
  Sex: Male

DRUGS (5)
  1. FLAGYL [Concomitant]
     Active Substance: METRONIDAZOLE\METRONIDAZOLE HYDROCHLORIDE
     Indication: ABDOMINAL ABSCESS
     Dosage: 1000 MILLIGRAM
     Route: 048
     Dates: start: 20171117
  2. REVLIMID [Suspect]
     Active Substance: LENALIDOMIDE
     Indication: MALAISE
     Dosage: 25 MILLIGRAM
     Route: 048
     Dates: start: 20171012
  3. VELCADE [Concomitant]
     Active Substance: BORTEZOMIB
     Indication: PRODUCT USED FOR UNKNOWN INDICATION
     Route: 065
  4. REVLIMID [Suspect]
     Active Substance: LENALIDOMIDE
     Indication: PLASMA CELL MYELOMA
  5. CIPRO [Concomitant]
     Active Substance: CIPROFLOXACIN HYDROCHLORIDE
     Indication: ABDOMINAL ABSCESS
     Dosage: 1000 MILLIGRAM
     Route: 048
     Dates: start: 20171117

REACTIONS (4)
  - Joint swelling [Recovered/Resolved]
  - Rash maculo-papular [Not Recovered/Not Resolved]
  - Abdominal pain upper [Not Recovered/Not Resolved]
  - Pain in extremity [Not Recovered/Not Resolved]

NARRATIVE: CASE EVENT DATE: 20171023
